FAERS Safety Report 4947928-1 (Version None)
Quarter: 2006Q1

REPORT INFORMATION
  Report Type: 
  Country: None (occurrence: None)
  Receive Date: 20060314
  Receipt Date: 20060301
  Transmission Date: 20060701
  Serious: Yes (Hospitalization)
  Sender: FDA-Public Use
  Company Number: US200603000612

PATIENT
  Age: 76 Year
  Sex: Female

DRUGS (3)
  1. HUMULIN L [Suspect]
     Indication: DIABETES MELLITUS
  2. HUMULIN R [Suspect]
     Indication: DIABETES MELLITUS
  3. LANTUS [Concomitant]

REACTIONS (6)
  - ACTIVITIES OF DAILY LIVING IMPAIRED [None]
  - BLOOD GLUCOSE INCREASED [None]
  - DIFFICULTY IN WALKING [None]
  - FALL [None]
  - NERVE COMPRESSION [None]
  - PAIN [None]
